FAERS Safety Report 14928496 (Version 1)
Quarter: 2018Q2

REPORT INFORMATION
  Report Type: Spontaneous
  Country: FR (occurrence: FR)
  Receive Date: 20180523
  Receipt Date: 20180523
  Transmission Date: 20180711
  Serious: Yes (Hospitalization)
  Sender: FDA-Public Use
  Company Number: FR-AXELLIA-001695

PATIENT
  Age: 53 Year
  Sex: Female
  Weight: 80 kg

DRUGS (11)
  1. OXACILLINE SODIQUE [Suspect]
     Active Substance: OXACILLIN SODIUM
     Indication: SEPSIS
     Route: 042
     Dates: start: 20180412
  2. PARACETAMOL [Concomitant]
     Active Substance: ACETAMINOPHEN
  3. INSULIN [Concomitant]
     Active Substance: INSULIN NOS
  4. CLINDAMYCIN. [Suspect]
     Active Substance: CLINDAMYCIN
     Indication: SEPSIS
     Route: 042
     Dates: start: 20180412
  5. INEXIUM [Concomitant]
     Active Substance: ESOMEPRAZOLE
     Dosage: STRENGTH 40 MG
  6. JANUMET [Concomitant]
     Active Substance: METFORMIN HYDROCHLORIDE\SITAGLIPTIN PHOSPHATE
     Route: 048
  7. NEFOPAM [Concomitant]
     Active Substance: NEFOPAM
     Dates: start: 20180419
  8. DAPTOMYCIN. [Suspect]
     Active Substance: DAPTOMYCIN
     Indication: SEPSIS
     Route: 042
     Dates: start: 20180413, end: 20180418
  9. TRAMADOL. [Concomitant]
     Active Substance: TRAMADOL
  10. APROVEL [Concomitant]
     Active Substance: IRBESARTAN
     Dosage: STRENGTH 150 MG
  11. ENOXAPARIN [Concomitant]
     Active Substance: ENOXAPARIN

REACTIONS (2)
  - Diarrhoea [Recovering/Resolving]
  - Encephalopathy [Recovering/Resolving]

NARRATIVE: CASE EVENT DATE: 20180420
